FAERS Safety Report 8294325-X (Version None)
Quarter: 2012Q2

REPORT INFORMATION
  Report Type: 
  Country: None (occurrence: None)
  Receive Date: 20120418
  Receipt Date: 20120411
  Transmission Date: 20120825
  Serious: Yes (Hospitalization)
  Sender: FDA-Public Use
  Company Number: DE-UCBSA-055269

PATIENT
  Sex: Male

DRUGS (2)
  1. MORPHINE [Concomitant]
     Indication: SEDATION
     Dosage: 50 MG
     Dates: start: 20111008, end: 20111013
  2. KEPPRA [Suspect]
     Indication: EPILEPSY
     Route: 048
     Dates: start: 20110929, end: 20111018

REACTIONS (1)
  - DELAYED RECOVERY FROM ANAESTHESIA [None]
